FAERS Safety Report 10871501 (Version 1)
Quarter: 2015Q1

REPORT INFORMATION
  Report Type: Spontaneous
  Country: US (occurrence: None)
  Receive Date: 20150223
  Receipt Date: 20150223
  Transmission Date: 20150721
  Serious: Yes (Life-Threatening, Hospitalization, Disabling, Other)
  Sender: FDA-Public Use
  Company Number: None

PATIENT
  Age: 13 Year
  Sex: Female
  Weight: 83.92 kg

DRUGS (6)
  1. KID^S GUMMY VITAMIN [Concomitant]
  2. LOVENOX [Concomitant]
     Active Substance: ENOXAPARIN SODIUM
  3. BLEOMYCIN [Suspect]
     Active Substance: BLEOMYCIN SULFATE
  4. GABAPENTIN. [Concomitant]
     Active Substance: GABAPENTIN
  5. PROZAC [Concomitant]
     Active Substance: FLUOXETINE HYDROCHLORIDE
  6. MAGNESIUM [Concomitant]
     Active Substance: MAGNESIUM

REACTIONS (4)
  - Coagulopathy [None]
  - Ill-defined disorder [None]
  - Musculoskeletal disorder [None]
  - Arterial occlusive disease [None]

NARRATIVE: CASE EVENT DATE: 20140904
